FAERS Safety Report 6871840-4 (Version None)
Quarter: 2010Q3

REPORT INFORMATION
  Report Type: 
  Country: None (occurrence: None)
  Receive Date: 20100723
  Receipt Date: 20100715
  Transmission Date: 20110219
  Serious: Yes (Hospitalization, Other)
  Sender: FDA-Public Use
  Company Number: US-JNJFOC-20100504756

PATIENT
  Age: 2 Year
  Sex: Male

DRUGS (9)
  1. CHILDREN'S MOTRIN [Suspect]
     Indication: TEETHING
     Route: 048
  2. CHILDREN'S MOTRIN [Suspect]
     Indication: PYREXIA
     Route: 048
  3. CHILDREN'S MOTRIN [Suspect]
     Indication: EAR INFECTION
     Route: 048
  4. CHILDREN'S MOTRIN [Suspect]
     Indication: TEETHING
     Route: 048
  5. CHILDREN'S MOTRIN [Suspect]
     Indication: PYREXIA
     Route: 048
  6. CHILDREN'S MOTRIN [Suspect]
     Indication: EAR INFECTION
     Route: 048
  7. CHILDREN'S TYLENOL SUSPENSION [Suspect]
     Indication: TEETHING
  8. CHILDREN'S TYLENOL SUSPENSION [Suspect]
     Indication: PYREXIA
  9. CHILDREN'S TYLENOL SUSPENSION [Suspect]
     Indication: EAR INFECTION

REACTIONS (3)
  - CONVULSION [None]
  - PRODUCT QUALITY ISSUE [None]
  - PYREXIA [None]
